FAERS Safety Report 9144248 (Version 1)
Quarter: 2013Q1

REPORT INFORMATION
  Report Type: Spontaneous
  Country: US (occurrence: US)
  Receive Date: 20130306
  Receipt Date: 20130306
  Transmission Date: 20140127
  Serious: Yes (Other)
  Sender: FDA-Public Use
  Company Number: US-PURDUE-USA-2013-0099541

PATIENT
  Sex: Male

DRUGS (2)
  1. BUTRANS [Suspect]
     Indication: PRODUCT USED FOR UNKNOWN INDICATION
     Dosage: 5 MCG, WEEKLY
     Route: 062
  2. BUTRANS [Suspect]
     Dosage: 10 MCG, WEEKLY
     Route: 062

REACTIONS (2)
  - Substance abuse [Unknown]
  - Hepatic enzyme increased [Unknown]
